FAERS Safety Report 16031123 (Version 1)
Quarter: 2019Q1

REPORT INFORMATION
  Report Type: Spontaneous
  Country: US (occurrence: US)
  Receive Date: 20190304
  Receipt Date: 20190304
  Transmission Date: 20190418
  Serious: Yes (Other)
  Sender: FDA-Public Use
  Company Number: US-ASTRAZENECA-2018SF65317

PATIENT
  Age: 22550 Day
  Sex: Female
  Weight: 84.4 kg

DRUGS (23)
  1. GLIPIZIDE. [Concomitant]
     Active Substance: GLIPIZIDE
  2. ALBUTEROL. [Concomitant]
     Active Substance: ALBUTEROL
  3. PREVACID 24 HR [Suspect]
     Active Substance: LANSOPRAZOLE
     Route: 065
  4. ACETAZOLAMIDE. [Concomitant]
     Active Substance: ACETAZOLAMIDE
  5. METAXALONE. [Concomitant]
     Active Substance: METAXALONE
  6. AMLODIPINE [Concomitant]
     Active Substance: AMLODIPINE BESYLATE
  7. PRAVASTATIN. [Concomitant]
     Active Substance: PRAVASTATIN
  8. NEXIUM [Suspect]
     Active Substance: ESOMEPRAZOLE MAGNESIUM
     Route: 048
  9. PREVACID [Suspect]
     Active Substance: LANSOPRAZOLE
     Route: 065
  10. PANTOPRAZOLE [Concomitant]
     Active Substance: PANTOPRAZOLE
  11. VENTOLIN [Concomitant]
     Active Substance: ALBUTEROL SULFATE
  12. FUROSEMIDE. [Concomitant]
     Active Substance: FUROSEMIDE
  13. ATACAND [Concomitant]
     Active Substance: CANDESARTAN CILEXETIL
  14. FLONASE [Concomitant]
     Active Substance: FLUTICASONE PROPIONATE
  15. TRAMADOL. [Concomitant]
     Active Substance: TRAMADOL
  16. LEVOTHYROXINE. [Concomitant]
     Active Substance: LEVOTHYROXINE
  17. METOPROLOL. [Concomitant]
     Active Substance: METOPROLOL
  18. FLUTICASONE. [Concomitant]
     Active Substance: FLUTICASONE
  19. PROTONIX [Suspect]
     Active Substance: PANTOPRAZOLE SODIUM
     Route: 065
  20. ATORVASTATIN [Concomitant]
     Active Substance: ATORVASTATIN
  21. METOPROLOL. [Concomitant]
     Active Substance: METOPROLOL
  22. LANSOPRAZOLE. [Concomitant]
     Active Substance: LANSOPRAZOLE
  23. FLUTICASONE. [Concomitant]
     Active Substance: FLUTICASONE

REACTIONS (4)
  - Rebound acid hypersecretion [Unknown]
  - Renal failure [Unknown]
  - Renal injury [Unknown]
  - Chronic kidney disease [Unknown]

NARRATIVE: CASE EVENT DATE: 20120718
